FAERS Safety Report 4277405-5 (Version None)
Quarter: 2004Q1

REPORT INFORMATION
  Report Type: 
  Country: None (occurrence: None)
  Receive Date: 20040122
  Receipt Date: 20040115
  Transmission Date: 20041129
  Serious: Yes (Other)
  Sender: FDA-Public Use
  Company Number: US-GLAXOSMITHKLINE-A0493461A

PATIENT
  Age: 47 Year
  Sex: Female

DRUGS (2)
  1. IMITREX [Suspect]
     Indication: MIGRAINE
     Dosage: 50MG AS REQUIRED
     Route: 048
     Dates: start: 20040111
  2. ALBUTEROL [Concomitant]
     Indication: ASTHMA

REACTIONS (7)
  - BACK PAIN [None]
  - BLOOD URINE [None]
  - CHEST PAIN [None]
  - NEUTROPHILIA [None]
  - URETERIC DILATATION [None]
  - URETERITIS [None]
  - WHITE BLOOD CELLS URINE POSITIVE [None]
